FAERS Safety Report 9752253 (Version 2)
Quarter: 2013Q4

REPORT INFORMATION
  Report Type: Spontaneous
  Country: US (occurrence: US)
  Receive Date: 20131213
  Receipt Date: 20131213
  Transmission Date: 20140711
  Serious: No
  Sender: FDA-Public Use
  Company Number: US-MYLANLABS-2013S1021520

PATIENT
  Age: 65 Year
  Sex: Male
  Weight: 120.2 kg

DRUGS (4)
  1. PIOGLITAZONE TABLETS USP [Suspect]
     Indication: DIABETES MELLITUS
     Route: 048
     Dates: start: 20130413
  2. METFORMIN [Concomitant]
     Indication: DIABETES MELLITUS
  3. LANTUS [Concomitant]
     Indication: DIABETES MELLITUS
     Route: 058
  4. BLOOD PRESSURE MEDICATION [Concomitant]
     Indication: BLOOD PRESSURE INCREASED

REACTIONS (3)
  - Drug ineffective [Not Recovered/Not Resolved]
  - Blood glucose increased [Not Recovered/Not Resolved]
  - Drug interaction [Not Recovered/Not Resolved]
